FAERS Safety Report 6157494-3 (Version None)
Quarter: 2009Q2

REPORT INFORMATION
  Report Type: 
  Country: None (occurrence: None)
  Receive Date: 20090416
  Receipt Date: 20090409
  Transmission Date: 20091009
  Serious: Yes (Other)
  Sender: FDA-Public Use
  Company Number: PHHY2008JP32695

PATIENT
  Age: 83 Year
  Sex: Female

DRUGS (3)
  1. LOCHOL [Suspect]
     Indication: HYPERCHOLESTEROLAEMIA
     Dosage: 20MG PER DAY
     Route: 048
     Dates: start: 20080219, end: 20081211
  2. DIOVAN [Concomitant]
     Indication: HYPERTENSION
     Dosage: 80MG
     Route: 048
     Dates: end: 20081211
  3. ARICEPT [Concomitant]
     Route: 048

REACTIONS (5)
  - BLOOD CREATININE INCREASED [None]
  - BLOOD UREA INCREASED [None]
  - CEREBRAL HAEMORRHAGE [None]
  - FALL [None]
  - RENAL DISORDER [None]
